FAERS Safety Report 9145515 (Version 2)
Quarter: 2013Q1

REPORT INFORMATION
  Report Type: Spontaneous
  Country: US (occurrence: None)
  Receive Date: 20130207
  Receipt Date: 20130208
  Transmission Date: 20140127
  Serious: Yes (Death)
  Sender: FDA-Public Use
  Company Number: 1592322

PATIENT
  Sex: 0

DRUGS (4)
  1. BLEOMYCIN SULFATE [Suspect]
     Route: 064
  2. DACARBAZINE [Suspect]
     Route: 064
  3. VINBLASTINE [Suspect]
     Route: 064
  4. DOXORUBICIN [Suspect]
     Route: 064

REACTIONS (2)
  - Maternal drugs affecting foetus [None]
  - Stillbirth [None]
